FAERS Safety Report 15988280 (Version 1)
Quarter: 2019Q1

REPORT INFORMATION
  Report Type: Spontaneous
  Country: US (occurrence: US)
  Receive Date: 20190221
  Receipt Date: 20190221
  Transmission Date: 20190418
  Serious: No
  Sender: FDA-Public Use
  Company Number: US-TRIS PHARMA, INC.-2019TRISPO00047

PATIENT

DRUGS (2)
  1. HYDROCODONE + APAP [Suspect]
     Active Substance: ACETAMINOPHEN\HYDROCODONE BITARTRATE
     Indication: PAIN
     Dosage: UNK, PRN
     Route: 065
     Dates: start: 1985
  2. DICYCLOMINE [Concomitant]
     Active Substance: DICYCLOMINE HYDROCHLORIDE
     Indication: SURGERY
     Dosage: 10 MG, TID
     Route: 048
     Dates: start: 201510

REACTIONS (2)
  - Drug effect delayed [Unknown]
  - Drug ineffective [Unknown]
